FAERS Safety Report 9486318 (Version 2)
Quarter: 2013Q3

REPORT INFORMATION
  Report Type: Spontaneous
  Country: US (occurrence: US)
  Receive Date: 20130829
  Receipt Date: 20130923
  Transmission Date: 20140515
  Serious: No
  Sender: FDA-Public Use
  Company Number: US-PFIZER INC-2013247746

PATIENT
  Age: 53 Year
  Sex: Male
  Weight: 81.63 kg

DRUGS (19)
  1. CHANTIX [Suspect]
     Indication: SMOKING CESSATION THERAPY
     Dosage: 0.5 MG, 1X/DAY
     Route: 048
  2. CHANTIX [Suspect]
     Dosage: 1 MG, DAILY
     Route: 048
     Dates: start: 20130111
  3. CHANTIX [Suspect]
     Dosage: 0.5 MG, 1X/DAY
     Route: 048
     Dates: start: 201303, end: 201304
  4. DIAZEPAM [Concomitant]
     Indication: MUSCLE SPASMS
     Dosage: 10 MG, 1X/DAY (TAKE 1 TABLET EVERY MORNING AS NEEDED)
     Route: 048
  5. DIAZEPAM [Concomitant]
     Indication: MUSCLE SPASMS
  6. DIAZEPAM [Concomitant]
     Indication: TEMPOROMANDIBULAR JOINT SYNDROME
  7. MORPHINE [Concomitant]
     Dosage: 100 MG, 2X/DAY
  8. TOPIRAMATE [Concomitant]
     Indication: MIGRAINE
     Dosage: 50 MG, 2X/DAY
     Route: 048
  9. CYCLOBENZAPRINE [Concomitant]
     Indication: PAIN
     Dosage: UNK
     Route: 048
  10. FERROUS SULPHATE [Concomitant]
     Dosage: 325 MG, 1X/DAY
     Route: 048
  11. GABAPENTIN [Concomitant]
     Dosage: 800 MG, 3X/DAY
     Route: 048
  12. LOVASTATIN [Concomitant]
     Dosage: 80 MG, 1X/DAY  (TAKE 2 TABLETS DAILY)
     Route: 048
  13. MORPHINE SULFATE [Concomitant]
     Indication: PAIN
     Dosage: 1-2 TABLETS FOUR TIMES DAILY AS NEEDED
     Route: 048
  14. MORPHINE SULFATE ER [Concomitant]
     Dosage: 100 MG, 2X/DAY (TAKE 1 CAPSULE EVERY TWELVE HOURS)
     Route: 048
  15. OMEGA-3 FISH OIL [Concomitant]
     Dosage: 1000 MG, 2X/DAY
     Route: 048
  16. RIZATRIPTAN BENZOATE [Concomitant]
     Indication: HEADACHE
     Dosage: 1 TABLET AT ONSET OF HEADACHE AND MAY REPEAT EVERY 2 HOURS AS NEEDED
     Route: 048
  17. TYLENOL [Concomitant]
     Dosage: 650 MG, 3X/DAY
     Route: 048
  18. VITAMIN D [Concomitant]
     Dosage: 50000 IU, WEEKLY (TAKE 1 CAPSULE WEEKLY)
     Route: 048
  19. CYCLOBENZAPRINE HYDROCHLORIDE [Concomitant]
     Dosage: 10 MG, AS NEEDED
     Route: 048

REACTIONS (5)
  - Blood cholesterol increased [Recovered/Resolved]
  - Hypertension [Recovered/Resolved]
  - Blood glucose increased [Recovered/Resolved]
  - Weight fluctuation [Unknown]
  - Increased appetite [Recovered/Resolved]
